FAERS Safety Report 4952912-8 (Version None)
Quarter: 2006Q1

REPORT INFORMATION
  Report Type: 
  Country: None (occurrence: None)
  Receive Date: 20060321
  Receipt Date: 20051201
  Transmission Date: 20060701
  Serious: Yes (Life-Threatening)
  Sender: FDA-Public Use
  Company Number: GBR-2005-0002150

PATIENT
  Age: 67 Year
  Sex: Female

DRUGS (3)
  1. MORPHINE SULFATE [Suspect]
     Indication: DRUG USE FOR UNKNOWN INDICATION
     Dosage: 60 MG, DAILY, ORAL
     Route: 048
     Dates: start: 20050119, end: 20050209
  2. DUROGESIC               (FENTANYL) [Suspect]
     Dosage: 100 MG, TRANSDERMAL
     Route: 062
     Dates: start: 20050119
  3. ACTIQ [Suspect]
     Dosage: 0.6 MG, ORAL
     Route: 048
     Dates: start: 20050119

REACTIONS (2)
  - NEUROPATHY [None]
  - NEUROTOXICITY [None]
